FAERS Safety Report 4838655-X (Version None)
Quarter: 2005Q4

REPORT INFORMATION
  Report Type: 
  Country: None (occurrence: None)
  Receive Date: 20051129
  Receipt Date: 20050815
  Transmission Date: 20060501
  Serious: No
  Sender: FDA-Public Use
  Company Number: US-GLAXOSMITHKLINE-A0570172A

PATIENT
  Age: 34 Year
  Sex: Female
  Weight: 66 kg

DRUGS (2)
  1. COMMIT [Suspect]
     Dates: start: 20050805, end: 20050805
  2. NICODERM CQ [Suspect]

REACTIONS (3)
  - APPLICATION SITE ERYTHEMA [None]
  - CAUSTIC INJURY [None]
  - ORAL SOFT TISSUE DISORDER [None]
